FAERS Safety Report 6085329-6 (Version None)
Quarter: 2009Q1

REPORT INFORMATION
  Report Type: 
  Country: None (occurrence: None)
  Receive Date: 20090217
  Receipt Date: 20080225
  Transmission Date: 20090719
  Serious: Yes (Other)
  Sender: FDA-Public Use
  Company Number: 2007BH009789

PATIENT
  Age: 39 Year
  Sex: Male
  Weight: 67.5 kg

DRUGS (1)
  1. EXTRANEAL [Suspect]
     Indication: PERITONEAL DIALYSIS
     Dosage: 2 L; EVERY DAY; IP
     Route: 033
     Dates: start: 20071030, end: 20071119

REACTIONS (1)
  - PERITONEAL CLOUDY EFFLUENT [None]
